FAERS Safety Report 6100539-7 (Version None)
Quarter: 2009Q1

REPORT INFORMATION
  Report Type: 
  Country: None (occurrence: None)
  Receive Date: 20090303
  Receipt Date: 20090226
  Transmission Date: 20090719
  Serious: Yes (Other)
  Sender: FDA-Public Use
  Company Number: JP-ASTRAZENECA-2008AP03864

PATIENT
  Age: 24376 Day
  Sex: Female
  Weight: 60 kg

DRUGS (11)
  1. IRESSA [Suspect]
     Indication: LUNG ADENOCARCINOMA
     Route: 048
     Dates: start: 20080402, end: 20080508
  2. BUP-4 [Concomitant]
     Indication: DYSURIA
     Route: 048
  3. GASTER [Concomitant]
     Indication: GASTRIC ULCER
     Route: 048
  4. MAGLAX [Concomitant]
     Indication: CONSTIPATION
     Route: 048
  5. NOVAMIN [Concomitant]
     Indication: NAUSEA
     Route: 048
  6. BLOPRESS [Concomitant]
     Indication: HYPERTENSION
     Route: 048
  7. PURSENNID [Concomitant]
     Indication: CONSTIPATION
     Route: 048
  8. AMLODIN OD [Concomitant]
     Indication: HYPERTENSION
     Route: 048
  9. MEDICON [Concomitant]
     Indication: COUGH
     Route: 048
  10. MUCOSTA [Concomitant]
     Indication: GASTRITIS
     Route: 048
  11. LENDORMIN D [Concomitant]
     Indication: INSOMNIA
     Route: 048

REACTIONS (1)
  - PNEUMATOSIS INTESTINALIS [None]
